FAERS Safety Report 13415110 (Version 1)
Quarter: 2017Q2

REPORT INFORMATION
  Report Type: Spontaneous
  Country: US (occurrence: US)
  Receive Date: 20170407
  Receipt Date: 20170407
  Transmission Date: 20170830
  Serious: No
  Sender: FDA-Public Use
  Company Number: None

PATIENT
  Age: 51 Year
  Sex: Male
  Weight: 85.5 kg

DRUGS (2)
  1. OXYCONTIN [Suspect]
     Active Substance: OXYCODONE HYDROCHLORIDE
     Dosage: ?          QUANTITY:1 TABLET(S); EVERY 12 HOURS ORAL?
     Route: 048
  2. IBUPROFEN. [Concomitant]
     Active Substance: IBUPROFEN

REACTIONS (4)
  - Pain [None]
  - Drug effect decreased [None]
  - Product formulation issue [None]
  - Withdrawal syndrome [None]

NARRATIVE: CASE EVENT DATE: 20161031
